FAERS Safety Report 17386498 (Version 2)
Quarter: 2020Q1

REPORT INFORMATION
  Report Type: Spontaneous
  Country: US (occurrence: US)
  Receive Date: 20200206
  Receipt Date: 20200311
  Transmission Date: 20200409
  Serious: Yes (Hospitalization, Other)
  Sender: FDA-Public Use
  Company Number: US-PFIZER INC-2020046831

PATIENT
  Age: 10 Year
  Sex: Female
  Weight: 30 kg

DRUGS (4)
  1. CYTOXAN [Concomitant]
     Active Substance: CYCLOPHOSPHAMIDE
     Indication: DISEASE PROGRESSION
     Dosage: UNK
     Route: 048
  2. MORPHINE SULFATE. [Suspect]
     Active Substance: MORPHINE SULFATE
     Indication: TUMOUR PAIN
     Dosage: UNK (BASAL RATE OF 0.8MG/HR)
  3. TEMSIROLIMUS. [Suspect]
     Active Substance: TEMSIROLIMUS
     Indication: DISEASE PROGRESSION
     Dosage: UNK, (15MG/KG/DOSE REDUCED BY 25%=12MG)/(DAY1, DAY8, DAY15)
     Dates: start: 201910, end: 202002
  4. VINORELBINE [Concomitant]
     Active Substance: VINORELBINE TARTRATE
     Indication: DISEASE PROGRESSION
     Dosage: UNK
     Route: 048

REACTIONS (1)
  - Metastatic neoplasm [Not Recovered/Not Resolved]
